FAERS Safety Report 7101815-1 (Version None)
Quarter: 2010Q4

REPORT INFORMATION
  Report Type: 
  Country: None (occurrence: None)
  Receive Date: 20101115
  Receipt Date: 20101110
  Transmission Date: 20110411
  Serious: Yes (Death)
  Sender: FDA-Public Use
  Company Number: CA-SANOFI-AVENTIS-2010SA068497

PATIENT
  Sex: Female

DRUGS (2)
  1. OXALIPLATIN [Suspect]
  2. XELODA [Suspect]

REACTIONS (1)
  - DIARRHOEA [None]
